FAERS Safety Report 15339358 (Version 1)
Quarter: 2018Q3

REPORT INFORMATION
  Report Type: Spontaneous
  Country: US (occurrence: US)
  Receive Date: 20180831
  Receipt Date: 20180831
  Transmission Date: 20181010
  Serious: Yes (Other)
  Sender: FDA-Public Use
  Company Number: US-TEVA-2018-US-948781

PATIENT
  Sex: Female

DRUGS (1)
  1. IBUPROFEN. [Suspect]
     Active Substance: IBUPROFEN
     Dosage: 100 MG/5 ML

REACTIONS (5)
  - Product physical issue [Unknown]
  - Anaphylactic reaction [Unknown]
  - Lip swelling [Unknown]
  - Erythema [Unknown]
  - Dyspnoea [Unknown]
